FAERS Safety Report 6356494-8 (Version None)
Quarter: 2009Q3

REPORT INFORMATION
  Report Type: 
  Country: None (occurrence: None)
  Receive Date: 20090915
  Receipt Date: 20090902
  Transmission Date: 20100115
  Serious: Yes (Hospitalization)
  Sender: FDA-Public Use
  Company Number: B0565667A

PATIENT
  Sex: Female
  Weight: 69 kg

DRUGS (2)
  1. LAPATINIB [Suspect]
     Dosage: 1250MG PER DAY
     Dates: start: 20090220
  2. CAPECITABINE [Suspect]
     Dosage: 3400MG PER DAY
     Dates: start: 20090220

REACTIONS (3)
  - DIARRHOEA [None]
  - DISABILITY [None]
  - URINARY INCONTINENCE [None]
